FAERS Safety Report 6544560-3 (Version None)
Quarter: 2010Q1

REPORT INFORMATION
  Report Type: 
  Country: None (occurrence: None)
  Receive Date: 20100120
  Receipt Date: 20100120
  Transmission Date: 20100710
  Serious: Yes (Life-Threatening)
  Sender: FDA-Public Use
  Company Number: None

PATIENT
  Age: 47 Year
  Sex: Female
  Weight: 115.2136 kg

DRUGS (15)
  1. LEVAQUIN [Suspect]
     Indication: PNEUMONIA
     Dosage: 500 MG ONCE DAILY IV DRIP
     Route: 041
     Dates: start: 20100105, end: 20100107
  2. AZITHROMYCIN -ZITHROMAX- 500 MG PFIZER [Suspect]
     Indication: PNEUMONIA
     Dosage: 500 MG ONCE DAILY IV DRIP
     Route: 041
     Dates: start: 20100105, end: 20100107
  3. COGENTIN [Concomitant]
  4. WELLBUTRIN [Concomitant]
  5. BUSPAR [Concomitant]
  6. ROCEPHIN [Concomitant]
  7. DALTEPARIN -FRAGMIN- [Concomitant]
  8. DOCUSATE SODIUM -COLACE- [Concomitant]
  9. ACETAMINOPHEN AND HYDROCODONE BITARTRATE [Concomitant]
  10. ADVIL LIQUI-GELS [Concomitant]
  11. MORPHINE [Concomitant]
  12. POTASSIUM CHLORIDE -K-DUR- [Concomitant]
  13. RISPERDAL [Concomitant]
  14. ZOCOR [Concomitant]
  15. VENLAFAXINE -EFFEXOR XR- [Concomitant]

REACTIONS (1)
  - ELECTROCARDIOGRAM QT PROLONGED [None]
